FAERS Safety Report 5858395-8 (Version None)
Quarter: 2008Q3

REPORT INFORMATION
  Report Type: 
  Country: None (occurrence: None)
  Receive Date: 20080826
  Receipt Date: 20080819
  Transmission Date: 20090109
  Serious: Yes (Other)
  Sender: FDA-Public Use
  Company Number: AU-ABBOTT-08P-008-0464026-00

PATIENT
  Sex: Female

DRUGS (1)
  1. KLACID [Suspect]
     Indication: LOWER RESPIRATORY TRACT INFECTION
     Dates: start: 20080715

REACTIONS (3)
  - CANDIDIASIS [None]
  - VAGINAL EXFOLIATION [None]
  - VAGINAL HAEMORRHAGE [None]
